FAERS Safety Report 8326932-X (Version None)
Quarter: 2012Q2

REPORT INFORMATION
  Report Type: 
  Country: None (occurrence: None)
  Receive Date: 20120501
  Receipt Date: 20120425
  Transmission Date: 20120825
  Serious: Yes (Hospitalization, Other)
  Sender: FDA-Public Use
  Company Number: US-ELI_LILLY_AND_COMPANY-US201204009139

PATIENT
  Sex: Male

DRUGS (2)
  1. HUMALOG [Suspect]
     Dosage: UNK, PRN
     Route: 065
     Dates: start: 20070101
  2. HUMALOG [Suspect]
     Indication: DIABETES MELLITUS
     Dosage: UNK, PRN
     Route: 065
     Dates: start: 20070101

REACTIONS (4)
  - DIALYSIS [None]
  - EXPIRED DRUG ADMINISTERED [None]
  - HIP ARTHROPLASTY [None]
  - MEMORY IMPAIRMENT [None]
